FAERS Safety Report 13271205 (Version 2)
Quarter: 2017Q1

REPORT INFORMATION
  Report Type: Report from Study
  Country: HU (occurrence: HU)
  Receive Date: 20170226
  Receipt Date: 20170307
  Transmission Date: 20170428
  Serious: Yes (Death, Hospitalization, Other)
  Sender: FDA-Public Use
  Company Number: PHHY2017HU029695

PATIENT
  Age: 84 Year
  Sex: Female

DRUGS (1)
  1. AFINITOR [Suspect]
     Active Substance: EVEROLIMUS
     Indication: BREAST CANCER
     Dosage: 10 MG, QD
     Route: 048
     Dates: start: 20161109

REACTIONS (16)
  - Cardiac failure [Fatal]
  - Gastroenteritis clostridial [Fatal]
  - Dyspnoea [Unknown]
  - Wheezing [Unknown]
  - Dysphagia [Unknown]
  - Hyponatraemia [Unknown]
  - Cough [Unknown]
  - Decubitus ulcer [Unknown]
  - Inflammatory marker increased [Fatal]
  - Diarrhoea [Fatal]
  - General physical health deterioration [Unknown]
  - Somnolence [Unknown]
  - Atrial fibrillation [Fatal]
  - Hydrothorax [Unknown]
  - Breath sounds abnormal [Unknown]
  - Leukaemoid reaction [Unknown]

NARRATIVE: CASE EVENT DATE: 20170127
